FAERS Safety Report 7406063-3 (Version None)
Quarter: 2011Q2

REPORT INFORMATION
  Report Type: 
  Country: None (occurrence: None)
  Receive Date: 20110411
  Receipt Date: 20110402
  Transmission Date: 20111010
  Serious: Yes (Other)
  Sender: FDA-Public Use
  Company Number: B0710283A

PATIENT
  Age: 65 Year
  Sex: Female
  Weight: 52.3 kg

DRUGS (4)
  1. ROPINIROLE [Suspect]
     Route: 048
     Dates: start: 20101115, end: 20110303
  2. MOXONIDINE [Concomitant]
     Indication: HYPERTENSION
     Route: 048
  3. BENDROFLUAZIDE [Concomitant]
     Indication: HYPERTENSION
     Route: 048
  4. ROSUVASTATIN [Concomitant]
     Indication: HYPERTENSION
     Route: 048

REACTIONS (1)
  - WITHDRAWAL SYNDROME [None]
